FAERS Safety Report 8300972-9 (Version None)
Quarter: 2012Q2

REPORT INFORMATION
  Report Type: 
  Country: None (occurrence: None)
  Receive Date: 20120420
  Receipt Date: 20120405
  Transmission Date: 20120825
  Serious: Yes (Hospitalization)
  Sender: FDA-Public Use
  Company Number: US-ENDO PHARMACEUTICALS INC.-OPCR20120132

PATIENT
  Sex: Female

DRUGS (2)
  1. OPANA ER [Suspect]
     Route: 048
     Dates: start: 20120101
  2. OPANA ER [Suspect]
     Indication: PAIN
     Route: 048
     Dates: start: 20120101

REACTIONS (3)
  - ADVERSE EVENT [None]
  - NAUSEA [None]
  - URTICARIA [None]
